FAERS Safety Report 5078171-6 (Version None)
Quarter: 2006Q3

REPORT INFORMATION
  Report Type: 
  Country: None (occurrence: None)
  Receive Date: 20060725
  Receipt Date: 20060411
  Transmission Date: 20061208
  Serious: No
  Sender: FDA-Public Use
  Company Number: 2006-BP-04162BP

PATIENT
  Sex: 0

DRUGS (4)
  1. APTIVUS/RITONAVIR CAPSULES [Suspect]
     Dosage: (SEE TEXT,250 MG TIPRANAVIR / 100MG RITONAVIR)
     Dates: start: 20031101
  2. SUSTIVA [Concomitant]
  3. TRUVADA [Concomitant]
  4. FUZEON [Concomitant]

REACTIONS (2)
  - BLOOD TRIGLYCERIDES INCREASED [None]
  - VIRAL LOAD [None]
